FAERS Safety Report 5025697-7 (Version None)
Quarter: 2006Q2

REPORT INFORMATION
  Report Type: 
  Country: None (occurrence: None)
  Receive Date: 20060614
  Receipt Date: 20060604
  Transmission Date: 20061013
  Serious: Yes (Other)
  Sender: FDA-Public Use
  Company Number: BR-JNJFOC-20060601875

PATIENT
  Age: 23 Year
  Sex: Female

DRUGS (2)
  1. TOPAMAX [Suspect]
     Indication: BIPOLAR DISORDER
     Route: 048
  2. DEPAKENE [Suspect]
     Indication: BIPOLAR DISORDER
     Dosage: FOR 2 YEARS
     Route: 048

REACTIONS (6)
  - CRYING [None]
  - EUPHORIC MOOD [None]
  - FEELING HOT [None]
  - SOMNOLENCE [None]
  - TACHYCARDIA [None]
  - TREMOR [None]
